FAERS Safety Report 8044291-7 (Version None)
Quarter: 2012Q1

REPORT INFORMATION
  Report Type: 
  Country: None (occurrence: None)
  Receive Date: 20120113
  Receipt Date: 20120105
  Transmission Date: 20120608
  Serious: Yes (Other)
  Sender: FDA-Public Use
  Company Number: JP-ASTELLAS-2012JP000023

PATIENT
  Age: 78 Year
  Sex: Male

DRUGS (5)
  1. VESICARE [Suspect]
     Dosage: 5 MG, UNKNOWN/D
     Route: 048
     Dates: start: 20111202
  2. TAMSULOSIN HCL [Concomitant]
     Dosage: 0.2 MG, UNKNOWN/D
     Route: 048
  3. CALBLOCK [Concomitant]
     Dosage: 16 MG, UNKNOWN/D
     Route: 048
  4. FAMOTIDINE [Concomitant]
     Dosage: 20 MG, UNKNOWN/D
     Route: 048
  5. DIOVAN [Concomitant]
     Dosage: 40 MG, UNKNOWN/D
     Route: 048

REACTIONS (1)
  - CHEST PAIN [None]
